FAERS Safety Report 5079050-0 (Version None)
Quarter: 2006Q3

REPORT INFORMATION
  Report Type: 
  Country: None (occurrence: None)
  Receive Date: 20060814
  Receipt Date: 20060803
  Transmission Date: 20061208
  Serious: Yes (Disabling, Other)
  Sender: FDA-Public Use
  Company Number: GB-JNJFOC-20060801241

PATIENT
  Age: 35 Year
  Sex: Female
  Weight: 60 kg

DRUGS (5)
  1. REMICADE [Suspect]
     Indication: COLITIS ULCERATIVE
     Route: 042
  2. FRAGMIN [Concomitant]
     Indication: COLITIS ULCERATIVE
     Route: 065
  3. HYDROCORTISONE TAB [Concomitant]
     Indication: COLITIS ULCERATIVE
     Route: 065
  4. MESALAZINE [Concomitant]
     Indication: COLITIS ULCERATIVE
     Route: 065
  5. PREDNISOLONE [Concomitant]
     Route: 065

REACTIONS (2)
  - DRUG EXPOSURE DURING PREGNANCY [None]
  - INTRA-UTERINE DEATH [None]
